FAERS Safety Report 6974918-X (Version None)
Quarter: 2010Q3

REPORT INFORMATION
  Report Type: 
  Country: None (occurrence: None)
  Receive Date: 20100909
  Receipt Date: 20090108
  Transmission Date: 20110219
  Serious: No
  Sender: FDA-Public Use
  Company Number: US-WYE-H07650309

PATIENT
  Sex: Male
  Weight: 184.78 kg

DRUGS (7)
  1. PRISTIQ [Suspect]
     Indication: DEPRESSION
     Route: 048
     Dates: start: 20090104
  2. ADVAIR DISKUS 100/50 [Concomitant]
  3. XOPENEX [Concomitant]
  4. ALLEGRA [Concomitant]
  5. SYNTHROID [Concomitant]
  6. WELLBUTRIN [Concomitant]
  7. SINGULAIR [Concomitant]

REACTIONS (5)
  - DECREASED APPETITE [None]
  - DIZZINESS [None]
  - HEADACHE [None]
  - HYPERHIDROSIS [None]
  - VISION BLURRED [None]
